FAERS Safety Report 23369913 (Version 1)
Quarter: 2024Q1

REPORT INFORMATION
  Report Type: Spontaneous
  Country: US (occurrence: None)
  Receive Date: 20240104
  Receipt Date: 20240104
  Transmission Date: 20240410
  Serious: Yes (Other)
  Sender: FDA-Public Use
  Company Number: None

PATIENT
  Age: 33 Year
  Sex: Female

DRUGS (1)
  1. NUCALA [Suspect]
     Active Substance: MEPOLIZUMAB
     Indication: Nasal polyps
     Dosage: FREQUENCY : MONTHLY;?
     Dates: start: 20231215

REACTIONS (4)
  - Epistaxis [None]
  - Pruritus [None]
  - Lymphadenopathy [None]
  - Injection related reaction [None]
